FAERS Safety Report 9889275 (Version 1)
Quarter: 2014Q1

REPORT INFORMATION
  Report Type: Spontaneous
  Country: IT (occurrence: IT)
  Receive Date: 20140211
  Receipt Date: 20140211
  Transmission Date: 20141002
  Serious: Yes (Other)
  Sender: FDA-Public Use
  Company Number: IT-TEVA-460080ISR

PATIENT
  Age: 71 Year
  Sex: Female

DRUGS (6)
  1. LISINOPRIL [Suspect]
     Indication: HYPERTENSION
     Dosage: 5 MILLIGRAM DAILY;
     Route: 048
     Dates: start: 20110101
  2. ADALAT - BAYER S.P.A. [Suspect]
     Indication: HYPERTENSION
     Dosage: 10 MILLIGRAM DAILY;
     Route: 048
     Dates: start: 20110101
  3. ACENOCOUMAROL [Suspect]
     Indication: THROMBOSIS PROPHYLAXIS
     Dosage: 2 MILLIGRAM DAILY;
     Route: 048
     Dates: start: 20110101, end: 20140120
  4. SPIRONOLACTONE [Suspect]
     Indication: HYPERTENSION
     Dosage: 25 MILLIGRAM DAILY;
     Route: 048
     Dates: start: 20110101
  5. DIGOXIN [Concomitant]
     Indication: PRODUCT USED FOR UNKNOWN INDICATION
     Dosage: .25 MILLIGRAM DAILY;
     Route: 048
     Dates: start: 20110101, end: 20140120
  6. ISOSORBIDE MONONITRATE [Concomitant]
     Indication: PRODUCT USED FOR UNKNOWN INDICATION
     Route: 048
     Dates: start: 20110101, end: 20140120

REACTIONS (3)
  - Cerebral haemorrhage [Unknown]
  - Haemoptysis [Unknown]
  - Hypertension [Unknown]
